FAERS Safety Report 19937550 (Version 2)
Quarter: 2021Q4

REPORT INFORMATION
  Report Type: Report from Study
  Country: US (occurrence: US)
  Receive Date: 20211011
  Receipt Date: 20211213
  Transmission Date: 20220304
  Serious: No
  Sender: FDA-Public Use
  Company Number: US-ACADIA PHARMACEUTICALS INC.-ACA-2021-PIM-003346

PATIENT
  Sex: Female

DRUGS (4)
  1. NUPLAZID [Interacting]
     Active Substance: PIMAVANSERIN TARTRATE
     Indication: Parkinson^s disease psychosis
     Dosage: 34 MILLIGRAM, QD
     Route: 065
     Dates: start: 202109, end: 20210908
  2. NUPLAZID [Interacting]
     Active Substance: PIMAVANSERIN TARTRATE
     Indication: Hallucination
  3. NUPLAZID [Interacting]
     Active Substance: PIMAVANSERIN TARTRATE
     Indication: Delusion
  4. SEROQUEL [Interacting]
     Active Substance: QUETIAPINE FUMARATE

REACTIONS (5)
  - Drug interaction [Unknown]
  - Malaise [Unknown]
  - Crying [Unknown]
  - Hallucination [Unknown]
  - Agitation [Unknown]
